FAERS Safety Report 4341953-X (Version None)
Quarter: 2004Q2

REPORT INFORMATION
  Report Type: 
  Country: None (occurrence: None)
  Receive Date: 20040415
  Receipt Date: 20040326
  Transmission Date: 20050107
  Serious: Yes (Hospitalization)
  Sender: FDA-Public Use
  Company Number: USA040362837

PATIENT
  Age: 16 Year
  Sex: Female

DRUGS (3)
  1. STRATTERA [Suspect]
  2. VICODIN [Concomitant]
  3. TRICYCLI ANTIDEPRESSANT [Concomitant]

REACTIONS (10)
  - AMNESIA [None]
  - ARRHYTHMIA [None]
  - COMA [None]
  - CONVULSION [None]
  - DRUG SCREEN POSITIVE [None]
  - ELECTROCARDIOGRAM QRS COMPLEX PROLONGED [None]
  - NODAL RHYTHM [None]
  - OVERDOSE [None]
  - SUICIDE ATTEMPT [None]
  - VENTRICULAR TACHYCARDIA [None]
